FAERS Safety Report 4850465-6 (Version None)
Quarter: 2005Q4

REPORT INFORMATION
  Report Type: 
  Country: None (occurrence: None)
  Receive Date: 20051207
  Receipt Date: 20051207
  Transmission Date: 20060501
  Serious: Yes (Hospitalization)
  Sender: FDA-Public Use
  Company Number: None

PATIENT
  Age: 46 Year
  Sex: Male
  Weight: 102.0593 kg

DRUGS (2)
  1. LITHIUM CITRATE [Suspect]
     Indication: SCHIZOAFFECTIVE DISORDER
     Dosage: 10ML BID PO
     Route: 048
     Dates: start: 20050520, end: 20050819
  2. LITHIUM CITRATE [Suspect]
     Indication: SCHIZOPHRENIA
     Dosage: 10ML BID PO
     Route: 048
     Dates: start: 20050520, end: 20050819

REACTIONS (3)
  - BLOOD CREATININE INCREASED [None]
  - DYSARTHRIA [None]
  - GAIT DISTURBANCE [None]
